FAERS Safety Report 23577252 (Version 1)
Quarter: 2024Q1

REPORT INFORMATION
  Report Type: Spontaneous
  Country: RU (occurrence: RU)
  Receive Date: 20240228
  Receipt Date: 20240228
  Transmission Date: 20240409
  Serious: Yes (Hospitalization, Other)
  Sender: FDA-Public Use
  Company Number: None

PATIENT
  Age: 12 Year
  Sex: Female
  Weight: 43 kg

DRUGS (8)
  1. TRIKAFTA [Suspect]
     Active Substance: ELEXACAFTOR\IVACAFTOR\TEZACAFTOR
     Indication: Cystic fibrosis
     Dosage: TWO ORANGE TABLETS IN THE MORNING AND ONE BLUE TABLET IN THE EVENING
     Route: 048
     Dates: start: 20230323, end: 20240208
  2. PULMOZYME [Concomitant]
     Active Substance: DORNASE ALFA
  3. CREON [Concomitant]
     Active Substance: PANCRELIPASE AMYLASE\PANCRELIPASE LIPASE\PANCRELIPASE PROTEASE
  4. URCEVEL [Concomitant]
  5. MIKRAZYM [Concomitant]
     Dosage: 10,000 U TWO TIMES PER DAY
     Route: 048
     Dates: start: 20240205, end: 20240210
  6. MIKRAZYM [Concomitant]
     Dosage: 15000 U 3 TIMES A DAY
     Route: 048
  7. URSODIOL [Concomitant]
     Active Substance: URSODIOL
     Dosage: TWO TIMES PER DAY
     Route: 048
     Dates: start: 20240205, end: 20240210
  8. TIGERASE [Concomitant]
     Dosage: 2.5 MILLIGRAM, QD
     Route: 055
     Dates: start: 202006

REACTIONS (1)
  - Posterior capsule opacification [Unknown]

NARRATIVE: CASE EVENT DATE: 20240206
